FAERS Safety Report 21556632 (Version 1)
Quarter: 2022Q4

REPORT INFORMATION
  Report Type: Spontaneous
  Country: DE (occurrence: DE)
  Receive Date: 20221104
  Receipt Date: 20221104
  Transmission Date: 20230113
  Serious: Yes (Hospitalization)
  Sender: FDA-Public Use
  Company Number: DE-ADRED-06739-03

PATIENT
  Age: 84 Year
  Sex: Male
  Weight: 77 kg

DRUGS (13)
  1. RAMIPRIL [Suspect]
     Active Substance: RAMIPRIL
     Indication: Product used for unknown indication
     Dosage: 2.5 MILLIGRAM, QD
     Route: 048
  2. LENALIDOMIDE [Suspect]
     Active Substance: LENALIDOMIDE
     Indication: Product used for unknown indication
     Dosage: 25 MILLIGRAM, QD,  0-1-0-0
     Route: 048
  3. ALLOPURINOL [Suspect]
     Active Substance: ALLOPURINOL
     Indication: Product used for unknown indication
     Dosage: 300 MILLIGRAM  0-0.5-0-0
     Route: 048
  4. ATENOLOL [Concomitant]
     Active Substance: ATENOLOL
     Dosage: 50 MG, 0.5-0-0.5-0
     Route: 048
  5. AMITRIPTYLINE [Concomitant]
     Active Substance: AMITRIPTYLINE
     Dosage: 10 MG, 1-0-0-0
     Route: 048
  6. AMITRIPTYLINE [Concomitant]
     Active Substance: AMITRIPTYLINE
     Dosage: 50 MILLIGRAM, , 0-0-1-0
     Route: 048
  7. ALBUTEROL [Concomitant]
     Active Substance: ALBUTEROL
     Dosage: 0.1 MG, NEED, METERED DOSE INHALER
  8. ASPIRIN [Concomitant]
     Active Substance: ASPIRIN
     Dosage: 100 MILLIGRAM, 0-1-0-0
     Route: 048
  9. KALIUMIODID BC [Concomitant]
     Dosage: 130 ?G  0-1-0-0
     Route: 048
  10. SIMVASTATIN [Concomitant]
     Active Substance: SIMVASTATIN
     Dosage: 40 MILLIGRAM,  0-0-1-0
     Route: 048
  11. TAMSULOSIN [Concomitant]
     Active Substance: TAMSULOSIN
     Dosage: 0.4 MILLIGRAM, 1-0-0-0,
     Route: 048
  12. DEXAMETHASONE [Concomitant]
     Active Substance: DEXAMETHASONE
     Dosage: 33.23 MILLIGRAM, BY REGIMEN, INJECTION SOLUTION/INFUSION SOLUTION, EXTENDED-RELEASE CAPSULES
     Route: 042
  13. Eisen [Concomitant]
     Dosage: 50 MILLIGRAM, 1-1-1-0
     Route: 048

REACTIONS (8)
  - Muscular weakness [Unknown]
  - Dysuria [Unknown]
  - General physical health deterioration [Unknown]
  - Hypokalaemia [Unknown]
  - Fatigue [Unknown]
  - Acute kidney injury [Unknown]
  - Renal impairment [Unknown]
  - Product prescribing error [Unknown]
